FAERS Safety Report 4994369-7 (Version None)
Quarter: 2006Q2

REPORT INFORMATION
  Report Type: 
  Country: None (occurrence: None)
  Receive Date: 20060505
  Receipt Date: 20060324
  Transmission Date: 20061013
  Serious: Yes (Hospitalization)
  Sender: FDA-Public Use
  Company Number: ES-BOEHRINGER INGELHEIM PHARMACEUTICALS, INC.-2006-ES-00127ES

PATIENT
  Sex: Male

DRUGS (4)
  1. MIRAPEXIN [Suspect]
     Indication: PARKINSON'S DISEASE
     Route: 048
  2. SELEGILINE HCL [Concomitant]
     Indication: PARKINSON'S DISEASE
     Route: 048
  3. BIPERIDEN HYDROCHLORIDE TAB [Concomitant]
     Indication: PARKINSON'S DISEASE
     Route: 048
  4. LANSOPRAZOLE [Concomitant]
     Indication: PROPHYLAXIS AGAINST GASTROINTESTINAL ULCER
     Route: 048

REACTIONS (1)
  - PANCREATITIS ACUTE [None]
